FAERS Safety Report 7190201-4 (Version None)
Quarter: 2010Q4

REPORT INFORMATION
  Report Type: 
  Country: None (occurrence: None)
  Receive Date: 20101223
  Receipt Date: 20101216
  Transmission Date: 20110411
  Serious: Yes (Hospitalization)
  Sender: FDA-Public Use
  Company Number: GB-NOVOPROD-317271

PATIENT
  Age: 68 Year
  Sex: Female

DRUGS (9)
  1. VICTOZA [Suspect]
     Indication: TYPE 2 DIABETES MELLITUS
     Dosage: 1.2 MG, QD
     Route: 058
     Dates: start: 20091215, end: 20101020
  2. GLIMEPIRIDE [Concomitant]
     Dosage: 4 MG, UNK
  3. NOVOMIX 30 [Concomitant]
     Indication: TYPE 2 DIABETES MELLITUS
     Dosage: 58 IU, TID
  4. ASPIRIN [Concomitant]
     Dosage: 75 MG, QD
  5. CANDESARTAN [Concomitant]
     Dosage: 4 MG, QD
  6. QUETIAPINE [Concomitant]
     Dosage: 100 MG, QD
  7. LANSOPRAZOL [Concomitant]
     Dosage: 15 MG, QD
  8. LITHIUM [Concomitant]
     Dosage: 400 MG, QD
  9. LEVOTHYROXINE SODIUM [Concomitant]
     Dosage: 50 UG, QD

REACTIONS (1)
  - PANCREATITIS [None]
